FAERS Safety Report 25442991 (Version 1)
Quarter: 2025Q2

REPORT INFORMATION
  Report Type: Report from Study
  Country: FR (occurrence: FR)
  Receive Date: 20250617
  Receipt Date: 20250617
  Transmission Date: 20250717
  Serious: Yes (Other)
  Sender: ROCHE
  Company Number: FR-ROCHE-10000307880

PATIENT

DRUGS (2)
  1. TOCILIZUMAB [Suspect]
     Active Substance: TOCILIZUMAB
     Indication: Uveitis
     Route: 042
  2. TOCILIZUMAB [Suspect]
     Active Substance: TOCILIZUMAB
     Indication: Uveitis
     Route: 058

REACTIONS (16)
  - Pancreatic carcinoma [Unknown]
  - Neutropenia [Unknown]
  - Headache [Unknown]
  - Skin reaction [Unknown]
  - Dizziness [Unknown]
  - Optic neuropathy [Unknown]
  - Thrombocytopenia [Unknown]
  - Spontaneous haematoma [Unknown]
  - Pyrexia [Unknown]
  - Infection [Unknown]
  - Blood cholesterol increased [Unknown]
  - Back pain [Unknown]
  - Abdominal pain [Unknown]
  - Renal neoplasm [Unknown]
  - Metastases to peritoneum [Unknown]
  - Prostate cancer [Unknown]
